FAERS Safety Report 20633404 (Version 1)
Quarter: 2022Q1

REPORT INFORMATION
  Report Type: Spontaneous
  Country: IN (occurrence: IN)
  Receive Date: 20220324
  Receipt Date: 20220324
  Transmission Date: 20220423
  Serious: Yes (Other)
  Sender: FDA-Public Use
  Company Number: IN-PURDUE-USA-2022-0292720

PATIENT

DRUGS (3)
  1. LIDOCAINE [Suspect]
     Active Substance: LIDOCAINE
     Indication: Migraine
     Dosage: 40 MG, UNK
     Route: 065
  2. TOPIRAMATE [Suspect]
     Active Substance: TOPIRAMATE
     Indication: Migraine
     Dosage: UNKNOWN
     Route: 048
  3. METHYLPREDNISOLONE [Suspect]
     Active Substance: METHYLPREDNISOLONE
     Indication: Migraine
     Dosage: 80 MG, UNK
     Route: 065

REACTIONS (15)
  - Syncope [Unknown]
  - Injection site haemorrhage [Unknown]
  - Dizziness [Unknown]
  - Injection site swelling [Unknown]
  - Injection site alopecia [Unknown]
  - Paraesthesia [Unknown]
  - Pain [Unknown]
  - Disturbance in attention [Unknown]
  - Headache [Unknown]
  - Pyrexia [Unknown]
  - Influenza like illness [Unknown]
  - Abdominal pain [Unknown]
  - Back pain [Unknown]
  - Toothache [Unknown]
  - Pain in extremity [Unknown]
